FAERS Safety Report 5069925-0 (Version None)
Quarter: 2006Q3

REPORT INFORMATION
  Report Type: 
  Country: None (occurrence: None)
  Receive Date: 20060731
  Receipt Date: 20060718
  Transmission Date: 20061208
  Serious: Yes (Hospitalization)
  Sender: FDA-Public Use
  Company Number: 2006057414

PATIENT
  Age: 61 Year
  Sex: Male
  Weight: 111 kg

DRUGS (11)
  1. SUTENT [Suspect]
     Indication: METASTATIC RENAL CELL CARCINOMA
     Dosage: 37.5 MG (37.5 MG, 1 IN 1 D), ORAL
     Route: 048
     Dates: start: 20060510
  2. FEXOFENADINE [Concomitant]
  3. METOPROLOL TARTRATE [Concomitant]
  4. MANIDIPINE [Concomitant]
  5. CLONIDINE [Concomitant]
  6. DIHYDRALAZIN (DIHYDRALAZINE SULFATE) [Concomitant]
  7. CANDESARTAN [Concomitant]
  8. ACETYLSALICYLIC ACID SRT [Concomitant]
  9. ISCADOR (VISCUM ALBUM EXTRACT) [Concomitant]
  10. MULTIPLE VITAMINS (ASCORBIC ACID, ERGOCALCIFEROL, FOLIC ACID, RETINOL, [Concomitant]
  11. EZETIMIBE/SIMVASTATIN [Concomitant]

REACTIONS (6)
  - BLOOD CREATININE INCREASED [None]
  - HAEMATURIA [None]
  - HYPOTENSION [None]
  - METASTASIS [None]
  - PROTEINURIA [None]
  - RENAL IMPAIRMENT [None]
